FAERS Safety Report 24106018 (Version 8)
Quarter: 2025Q1

REPORT INFORMATION
  Report Type: Report from Study
  Country: CA (occurrence: CA)
  Receive Date: 20240717
  Receipt Date: 20250304
  Transmission Date: 20250408
  Serious: Yes (Other)
  Sender: CSL BEHRING
  Company Number: CA-BEH-2024174545

PATIENT
  Age: 81 Year
  Sex: Female
  Weight: 72 kg

DRUGS (12)
  1. HIZENTRA [Suspect]
     Active Substance: HUMAN IMMUNOGLOBULIN G
     Indication: Secondary immunodeficiency
     Dosage: 14 G, QW
     Route: 065
     Dates: start: 20240617
  2. HIZENTRA [Suspect]
     Active Substance: HUMAN IMMUNOGLOBULIN G
     Route: 065
     Dates: start: 20240617
  3. HIZENTRA [Suspect]
     Active Substance: HUMAN IMMUNOGLOBULIN G
     Dosage: 14 G, QW
     Route: 065
     Dates: start: 20240617
  4. HIZENTRA [Suspect]
     Active Substance: HUMAN IMMUNOGLOBULIN G
     Dosage: 14 G, QW
     Route: 065
     Dates: start: 20240617
  5. VALSARTAN [Concomitant]
     Active Substance: VALSARTAN
  6. BISOPROLOL [Concomitant]
     Active Substance: BISOPROLOL
  7. FUROSEMIDE [Concomitant]
     Active Substance: FUROSEMIDE
  8. UNSPECIFIED INGREDIENT [Concomitant]
     Active Substance: UNSPECIFIED INGREDIENT
  9. VITAMIN D [Concomitant]
     Active Substance: VITAMIN D NOS
  10. CALCIUM [Concomitant]
     Active Substance: CALCIUM
  11. TRAZODONE [Concomitant]
     Active Substance: TRAZODONE HYDROCHLORIDE
  12. BRUKINSA [Concomitant]
     Active Substance: ZANUBRUTINIB

REACTIONS (29)
  - Pneumonia [Unknown]
  - Self esteem decreased [Recovered/Resolved]
  - Injection site erythema [Unknown]
  - Injection site swelling [Unknown]
  - Injection site pruritus [Unknown]
  - Productive cough [Unknown]
  - Patient dissatisfaction with treatment [Unknown]
  - Erythema [Recovered/Resolved]
  - Swelling [Recovered/Resolved]
  - Urinary tract infection [Recovered/Resolved]
  - Infusion site erythema [Unknown]
  - Infusion site swelling [Unknown]
  - Infusion site pruritus [Unknown]
  - Infusion site erythema [Unknown]
  - Infusion site swelling [Unknown]
  - Infusion site erythema [Unknown]
  - Infusion site swelling [Unknown]
  - Cough [Unknown]
  - Anxiety [Unknown]
  - Infusion site erythema [Unknown]
  - Infusion site swelling [Unknown]
  - Infusion site bruising [Unknown]
  - Malaise [Unknown]
  - Infusion site oedema [Unknown]
  - Anxiety [Unknown]
  - Fear of injection [Unknown]
  - Fatigue [Unknown]
  - Product use issue [Unknown]
  - Fear of injection [Unknown]

NARRATIVE: CASE EVENT DATE: 20240617
